FAERS Safety Report 12262441 (Version 2)
Quarter: 2016Q3

REPORT INFORMATION
  Report Type: Report from Study
  Country: JP (occurrence: JP)
  Receive Date: 20160413
  Receipt Date: 20160804
  Transmission Date: 20161109
  Serious: Yes (Other)
  Sender: FDA-Public Use
  Company Number: JP-BEH-2016061259

PATIENT
  Age: 21 Year
  Sex: Female
  Weight: 56.3 kg

DRUGS (5)
  1. HIZENTRA [Suspect]
     Active Substance: HUMAN IMMUNOGLOBULIN G
     Indication: IMMUNODEFICIENCY COMMON VARIABLE
     Dosage: DURATION: 60 MINS EACH INFUSION.
     Route: 058
     Dates: start: 20150109, end: 20150708
  2. SULFAMETHOXAZOLE AND TRIMETHOPRIM [Concomitant]
     Active Substance: SULFAMETHOXAZOLE\TRIMETHOPRIM
     Route: 048
     Dates: start: 20150630
  3. CRAVIT [Concomitant]
     Active Substance: LEVOFLOXACIN
     Route: 048
     Dates: end: 20150630
  4. UNASYN [Concomitant]
     Active Substance: AMPICILLIN SODIUM\SULBACTAM SODIUM
     Route: 048
     Dates: start: 20150630
  5. CLARITH [Concomitant]
     Active Substance: CLARITHROMYCIN
     Route: 048
     Dates: end: 20150630

REACTIONS (3)
  - Sinusitis [Recovered/Resolved]
  - Administration site pain [Recovered/Resolved]
  - Administration site pruritus [Recovered/Resolved]

NARRATIVE: CASE EVENT DATE: 20150109
